FAERS Safety Report 4921108-8 (Version None)
Quarter: 2006Q1

REPORT INFORMATION
  Report Type: 
  Country: None (occurrence: None)
  Receive Date: 20060223
  Receipt Date: 20060217
  Transmission Date: 20060701
  Serious: Yes (Hospitalization, Other)
  Sender: FDA-Public Use
  Company Number: US-MERCK-0602USA04794

PATIENT
  Age: 75 Year
  Sex: Male
  Weight: 82 kg

DRUGS (19)
  1. VIOXX [Suspect]
     Indication: ARTHRALGIA
     Route: 048
     Dates: start: 20001001, end: 20040701
  2. COVERA-HS [Concomitant]
     Route: 065
  3. ZESTORETIC [Concomitant]
     Route: 065
  4. ALLOPURINOL [Concomitant]
     Route: 065
  5. TIMOLOL [Concomitant]
     Route: 065
  6. XALATAN [Concomitant]
     Route: 065
  7. ZANTAC [Concomitant]
     Route: 065
  8. CLARITIN [Concomitant]
     Route: 065
  9. PRINZIDE [Concomitant]
     Route: 065
  10. PRINIVIL [Concomitant]
     Route: 065
  11. RANITIDINE [Concomitant]
     Route: 065
  12. CLARINEX [Concomitant]
     Route: 065
  13. NEXIUM [Concomitant]
     Route: 065
  14. NITROQUICK [Concomitant]
     Route: 065
  15. WARFARIN [Concomitant]
     Route: 065
  16. PHISOHEX [Concomitant]
     Route: 065
  17. COUMADIN [Concomitant]
     Route: 065
  18. HYDROCODONE BITARTRATE + ACETAMINOPHEN [Concomitant]
     Route: 065
  19. LEVAQUIN [Concomitant]
     Route: 065

REACTIONS (3)
  - CHEST PAIN [None]
  - GASTROOESOPHAGEAL REFLUX DISEASE [None]
  - MYOCARDIAL INFARCTION [None]
